FAERS Safety Report 6169627-3 (Version None)
Quarter: 2009Q2

REPORT INFORMATION
  Report Type: 
  Country: None (occurrence: None)
  Receive Date: 20090424
  Receipt Date: 20090204
  Transmission Date: 20091009
  Serious: No
  Sender: FDA-Public Use
  Company Number: ALL1-2009-00281

PATIENT
  Age: 32 Year
  Sex: Male
  Weight: 83.9 kg

DRUGS (2)
  1. VYVANSE [Suspect]
     Indication: ATTENTION DEFICIT/HYPERACTIVITY DISORDER
     Dosage: 30 MG, 1X/DAY, QD, ORAL
     Route: 048
     Dates: start: 20081101
  2. B6-VITAMIN NS (PYRIDOXINE HYDROCHLORIDE) [Concomitant]

REACTIONS (3)
  - HEART RATE INCREASED [None]
  - INSOMNIA [None]
  - TUBERCULOSIS [None]
